FAERS Safety Report 5289312-X (Version None)
Quarter: 2007Q2

REPORT INFORMATION
  Report Type: 
  Country: None (occurrence: None)
  Receive Date: 20070404
  Receipt Date: 20070404
  Transmission Date: 20071010
  Serious: Yes (Death)
  Sender: FDA-Public Use
  Company Number: None

PATIENT
  Age: 82 Year
  Sex: Female
  Weight: 49.8957 kg

DRUGS (1)
  1. CELEBREX [Suspect]

REACTIONS (1)
  - MYOCARDIAL INFARCTION [None]
